FAERS Safety Report 4289492-9 (Version None)
Quarter: 2004Q1

REPORT INFORMATION
  Report Type: 
  Country: None (occurrence: None)
  Receive Date: 20040206
  Receipt Date: 20040203
  Transmission Date: 20041129
  Serious: Yes (Hospitalization)
  Sender: FDA-Public Use
  Company Number: TCI2003A04605

PATIENT
  Age: 76 Year
  Sex: Male

DRUGS (6)
  1. LEUPLIN FOR INJECTION KIT3.75 (LEUPROLIDE ACETATE) (INJECTION) [Suspect]
     Indication: PROSTATE CANCER
     Dosage: 3.75 MG (3.75 MG, 1 IN 28 D)
     Route: 058
     Dates: start: 20021122, end: 20031118
  2. PROSTAL (CHLORADINONE ACETATE) (TABLETS) [Suspect]
     Indication: PROSTATE CANCER
     Dosage: 100 MG (100 MG, 1 D)
     Route: 048
     Dates: start: 20021022, end: 20031216
  3. TAMSULOSIN HYDROCHLORIDE (CAPSULES) [Concomitant]
  4. NAFTOPIDIL (TABLETS) [Concomitant]
  5. PROPIVERINE HYDROCHLORIDE (TABLETS) [Concomitant]
  6. AMBROXOL HYDROCHLORIDE (TABLETS) [Concomitant]

REACTIONS (9)
  - ANAEMIA [None]
  - APLASIA PURE RED CELL [None]
  - ERYTHROPENIA [None]
  - GASTROINTESTINAL HAEMORRHAGE [None]
  - LEUKOPENIA [None]
  - PALPITATIONS [None]
  - POST PROCEDURAL COMPLICATION [None]
  - RADIOTHERAPY [None]
  - THROMBOCYTOPENIA [None]
